FAERS Safety Report 24981727 (Version 3)
Quarter: 2025Q1

REPORT INFORMATION
  Report Type: Spontaneous
  Country: US (occurrence: None)
  Receive Date: 20250218
  Receipt Date: 20250314
  Transmission Date: 20250409
  Serious: Yes (Hospitalization, Other)
  Sender: INCYTE
  Company Number: US-EVENT-001733

PATIENT
  Age: 66 Year
  Weight: 76.1 kg

DRUGS (7)
  1. JAKAFI [Suspect]
     Active Substance: RUXOLITINIB
     Indication: Myelofibrosis
     Dosage: 15 MILLIGRAM, BID
  2. VANCOMYCIN [Suspect]
     Active Substance: VANCOMYCIN
     Indication: Pyelonephritis
     Route: 065
  3. ALLOPURINOL [Concomitant]
     Active Substance: ALLOPURINOL
     Indication: Product used for unknown indication
     Route: 065
  4. CYCLOBENZAPRINE [Concomitant]
     Active Substance: CYCLOBENZAPRINE
     Indication: Muscle spasms
     Route: 065
  5. DICLOFENAC [Concomitant]
     Active Substance: DICLOFENAC
     Indication: Arthritis
  6. NALOXONE [Concomitant]
     Active Substance: NALOXONE
     Indication: Toxicity to various agents
     Route: 065
  7. ROSUVASTATIN [Concomitant]
     Active Substance: ROSUVASTATIN
     Indication: Product used for unknown indication
     Route: 065

REACTIONS (33)
  - Pyrexia [Recovering/Resolving]
  - Acute kidney injury [Unknown]
  - Pyelonephritis [Unknown]
  - Blast cell count increased [Unknown]
  - Vomiting [Recovering/Resolving]
  - Tremor [Unknown]
  - Thirst [Unknown]
  - Palpitations [Unknown]
  - Back pain [Unknown]
  - Procalcitonin increased [Unknown]
  - Alpha 1 globulin abnormal [Unknown]
  - Anion gap increased [Unknown]
  - Basophil count increased [Unknown]
  - Blood albumin decreased [Unknown]
  - Blood alkaline phosphatase increased [Unknown]
  - Blood bilirubin increased [Unknown]
  - Blood calcium decreased [Unknown]
  - Blood chloride decreased [Unknown]
  - Blood glucose increased [Unknown]
  - Blood potassium decreased [Unknown]
  - Blood pressure abnormal [Unknown]
  - Blood sodium decreased [Unknown]
  - Drug level decreased [Unknown]
  - Epstein-Barr virus test positive [Unknown]
  - Immunoglobulins abnormal [Unknown]
  - Monocyte count increased [Unknown]
  - Protein total decreased [Unknown]
  - Troponin T [Unknown]
  - Splenomegaly [Unknown]
  - Dyspnoea [Unknown]
  - Nausea [Recovering/Resolving]
  - Aspartate aminotransferase increased [Unknown]
  - Weight decreased [Unknown]
